FAERS Safety Report 11417578 (Version 1)
Quarter: 2015Q3

REPORT INFORMATION
  Report Type: Spontaneous
  Country: FR (occurrence: FR)
  Receive Date: 20150825
  Receipt Date: 20150825
  Transmission Date: 20151125
  Serious: Yes (Hospitalization, Other)
  Sender: FDA-Public Use
  Company Number: FR-PFIZER INC-2015276810

PATIENT
  Age: 30 Year
  Sex: Female

DRUGS (8)
  1. AVLOCARDYL /00030001/ [Concomitant]
     Active Substance: PROPRANOLOL HYDROCHLORIDE
     Dosage: UNK
  2. ATARAX [Concomitant]
     Active Substance: HYDROXYZINE\HYDROXYZINE HYDROCHLORIDE
     Dosage: UNK,
  3. XEROQUEL LP [Concomitant]
     Active Substance: QUETIAPINE FUMARATE
     Dosage: UNK,
  4. ZOLOFT [Concomitant]
     Active Substance: SERTRALINE HYDROCHLORIDE
     Dosage: UNK
  5. DIFFU K [Concomitant]
     Active Substance: POTASSIUM CHLORIDE
     Dosage: UNK,
  6. XANAX [Suspect]
     Active Substance: ALPRAZOLAM
     Dosage: 10 MG, SINGLE
     Route: 048
     Dates: start: 20150610, end: 20150610
  7. THERALENE [Suspect]
     Active Substance: TRIMEPRAZINE
     Dosage: UNK
  8. THERALENE [Suspect]
     Active Substance: TRIMEPRAZINE
     Dosage: 30 ML, SINGLE
     Route: 048
     Dates: start: 20150610, end: 20150610

REACTIONS (8)
  - Somnolence [Recovered/Resolved]
  - Disturbance in attention [Unknown]
  - Tachypnoea [Recovered/Resolved]
  - Depressed mood [Unknown]
  - Suicide attempt [Recovered/Resolved]
  - Poisoning deliberate [Recovered/Resolved]
  - Intentional overdose [Recovered/Resolved]
  - Memory impairment [Unknown]

NARRATIVE: CASE EVENT DATE: 2015
